FAERS Safety Report 25632364 (Version 1)
Quarter: 2025Q3

REPORT INFORMATION
  Report Type: Spontaneous
  Country: US (occurrence: US)
  Receive Date: 20250801
  Receipt Date: 20250801
  Transmission Date: 20251020
  Serious: No
  Sender: Tarsus Pharmaceuticals
  Company Number: US-TARSUS PHARMACEUTICALS-TSP-US-2025-000624

PATIENT

DRUGS (4)
  1. XDEMVY [Suspect]
     Active Substance: LOTILANER
     Indication: Product used for unknown indication
     Dosage: 1 DROP, BID (1 DROP INTO AFFECTED  EYE(S) TWICE A DAY)
     Route: 047
  2. ASPIRIN [Concomitant]
     Active Substance: ASPIRIN
     Indication: Product used for unknown indication
     Dosage: 1 DROP, BID (1 DROP INTO AFFECTED  EYE(S) TWICE A DAY)
     Route: 065
  3. LEVOTHYROXINE [Concomitant]
     Active Substance: LEVOTHYROXINE
     Indication: Product used for unknown indication
     Dosage: 1 DROP, BID (1 DROP INTO AFFECTED  EYE(S) TWICE A DAY)
     Route: 065
  4. ATORVASTATIN [Concomitant]
     Active Substance: ATORVASTATIN
     Indication: Product used for unknown indication
     Dosage: 1 DROP, BID (1 DROP INTO AFFECTED  EYE(S) TWICE A DAY)
     Route: 065

REACTIONS (2)
  - Urticaria [Unknown]
  - Wrong technique in product usage process [Unknown]
